FAERS Safety Report 12515717 (Version 1)
Quarter: 2016Q2

REPORT INFORMATION
  Report Type: Report from Study
  Country: CH (occurrence: CH)
  Receive Date: 20160630
  Receipt Date: 20160630
  Transmission Date: 20160815
  Serious: Yes (Hospitalization)
  Sender: FDA-Public Use
  Company Number: CH-ABBVIE-16P-151-1664142-00

PATIENT
  Sex: Female

DRUGS (1)
  1. DUODOPA [Suspect]
     Active Substance: CARBIDOPA\LEVODOPA
     Indication: PARKINSON^S DISEASE
     Dosage: CONTINOUS RATE: 6.0 ML/H;MORNING DOSE: 7.5 ML;EXTRA DOSE: 1.5 ML
     Route: 050

REACTIONS (2)
  - Femur fracture [Unknown]
  - Fall [Recovering/Resolving]
